FAERS Safety Report 15291862 (Version 3)
Quarter: 2018Q4

REPORT INFORMATION
  Report Type: Spontaneous
  Country: US (occurrence: US)
  Receive Date: 20180817
  Receipt Date: 20181120
  Transmission Date: 20190204
  Serious: Yes (Death)
  Sender: FDA-Public Use
  Company Number: US-PRINSTON PHARMACEUTICAL INC.-2018PRN00812

PATIENT
  Age: 68 Year
  Sex: Male

DRUGS (1)
  1. VALSARTAN. [Suspect]
     Active Substance: VALSARTAN
     Indication: BLOOD PRESSURE ABNORMAL
     Dosage: 80 MG, 1X/DAY
     Route: 048
     Dates: start: 20151029

REACTIONS (2)
  - Rectal cancer [Fatal]
  - Metastases to liver [Fatal]

NARRATIVE: CASE EVENT DATE: 20160628
